FAERS Safety Report 24015506 (Version 1)
Quarter: 2024Q2

REPORT INFORMATION
  Report Type: Spontaneous
  Country: FR (occurrence: FR)
  Receive Date: 20240626
  Receipt Date: 20240626
  Transmission Date: 20240715
  Serious: Yes (Hospitalization)
  Sender: FDA-Public Use
  Company Number: None

PATIENT
  Age: 78 Year
  Sex: Male

DRUGS (2)
  1. LEVOFLOXACIN [Suspect]
     Active Substance: LEVOFLOXACIN
     Indication: Vessel puncture site inflammation
     Dosage: 750 MILLIGRAM
     Route: 048
     Dates: start: 20231216
  2. RIFAMPIN [Suspect]
     Active Substance: RIFAMPIN
     Indication: Vessel puncture site inflammation
     Dosage: 900 MILLIGRAM
     Route: 048
     Dates: start: 20231216

REACTIONS (1)
  - Pemphigoid [Not Recovered/Not Resolved]

NARRATIVE: CASE EVENT DATE: 20240225
